FAERS Safety Report 4731577-4 (Version None)
Quarter: 2005Q3

REPORT INFORMATION
  Report Type: 
  Country: None (occurrence: None)
  Receive Date: 20050802
  Receipt Date: 20050408
  Transmission Date: 20060218
  Serious: Yes (Other)
  Sender: FDA-Public Use
  Company Number: JP-ROCHE-401823

PATIENT
  Age: 74 Year
  Sex: Male

DRUGS (4)
  1. TAMIFLU [Suspect]
     Route: 048
     Dates: start: 20050401, end: 20050402
  2. LANDEL [Concomitant]
     Dosage: DRUG NAME WAS REPORTED AS LANDEL 10/20
     Route: 048
  3. OLMETEC [Concomitant]
     Route: 048
  4. 1 CONCOMITANT DRUG [Concomitant]
     Dosage: UNSPECIFIED HERBAL MEDICINE.
     Route: 046

REACTIONS (2)
  - BLOOD CREATINE PHOSPHOKINASE INCREASED [None]
  - MYOSITIS [None]
